FAERS Safety Report 11923289 (Version 6)
Quarter: 2016Q3

REPORT INFORMATION
  Report Type: Report from Study
  Country: BR (occurrence: BR)
  Receive Date: 20160118
  Receipt Date: 20160718
  Transmission Date: 20161109
  Serious: Yes (Other)
  Sender: FDA-Public Use
  Company Number: BR-ROCHE-1648013

PATIENT
  Age: 53 Year
  Sex: Female
  Weight: 86.9 kg

DRUGS (18)
  1. PREDNISONE. [Concomitant]
     Active Substance: PREDNISONE
     Indication: RHEUMATOID ARTHRITIS
     Route: 048
     Dates: start: 20140407, end: 201509
  2. LEVOFLOXACIN. [Concomitant]
     Active Substance: LEVOFLOXACIN
     Route: 048
     Dates: start: 20150605, end: 20150608
  3. TOCILIZUMAB [Suspect]
     Active Substance: TOCILIZUMAB
     Dosage: SUBSEQUENTLY ON 21/MAY/2015, 28/MAY/2015, 25/JUN/2015 AND 02/JUL/2015, THE THERAPY WAS MAINTAINED.
     Route: 058
     Dates: start: 20150702, end: 20150813
  4. VITAMIN A [Concomitant]
     Active Substance: VITAMIN A
     Dosage: 8 DROPS
     Route: 048
     Dates: start: 2015
  5. OSELTAMIVIR [Concomitant]
     Active Substance: OSELTAMIVIR
     Route: 048
     Dates: start: 20150608, end: 20150612
  6. TOCILIZUMAB [Suspect]
     Active Substance: TOCILIZUMAB
     Dosage: SUBSEQUENTLY ON 21/MAY/2015, 28/MAY/2015, 25/JUN/2015 AND 02/JUL/2015, THE THERAPY WAS MAINTAINED.
     Route: 058
     Dates: start: 20150625
  7. METHOTREXATE. [Suspect]
     Active Substance: METHOTREXATE
     Route: 048
     Dates: start: 20150612, end: 20150806
  8. TOCILIZUMAB [Suspect]
     Active Substance: TOCILIZUMAB
     Indication: RHEUMATOID ARTHRITIS
     Dosage: SUBSEQUENTLY ON 21/MAY/2015, 28/MAY/2015, 25/JUN/2015 AND 02/JUL/2015, THE THERAPY WAS MAINTAINED.
     Route: 058
     Dates: start: 20150514
  9. AZITHROMYCIN ANHYDROUS. [Concomitant]
     Active Substance: AZITHROMYCIN ANHYDROUS
     Route: 048
     Dates: start: 20150608, end: 20150612
  10. FOLIC ACID. [Concomitant]
     Active Substance: FOLIC ACID
     Indication: RHEUMATOID ARTHRITIS
     Route: 048
     Dates: start: 20140819, end: 20150604
  11. TOCILIZUMAB [Suspect]
     Active Substance: TOCILIZUMAB
     Dosage: SUBSEQUENTLY ON 21/MAY/2015, 28/MAY/2015, 25/JUN/2015 AND 02/JUL/2015, THE THERAPY WAS MAINTAINED.
     Route: 058
     Dates: start: 20150521
  12. ETANERCEPT [Concomitant]
     Active Substance: ETANERCEPT
     Indication: RHEUMATOID ARTHRITIS
     Route: 048
     Dates: start: 201511
  13. METHOTREXATE. [Suspect]
     Active Substance: METHOTREXATE
     Indication: RHEUMATOID ARTHRITIS
     Route: 048
     Dates: start: 20150325, end: 20150604
  14. ATENOLOL. [Concomitant]
     Active Substance: ATENOLOL
     Route: 048
     Dates: start: 20150228
  15. TOCILIZUMAB [Suspect]
     Active Substance: TOCILIZUMAB
     Dosage: SUBSEQUENTLY ON 21/MAY/2015, 28/MAY/2015, 25/JUN/2015 AND 02/JUL/2015, THE THERAPY WAS MAINTAINED.
     Route: 058
     Dates: start: 20150528
  16. OMEPRAZOLE. [Concomitant]
     Active Substance: OMEPRAZOLE
     Route: 048
     Dates: start: 1985
  17. CALCIUM CARBONATE. [Concomitant]
     Active Substance: CALCIUM CARBONATE
     Route: 048
     Dates: start: 2015
  18. FOLIC ACID. [Concomitant]
     Active Substance: FOLIC ACID
     Route: 048
     Dates: start: 20150612, end: 20151211

REACTIONS (1)
  - Drug-induced liver injury [Recovering/Resolving]

NARRATIVE: CASE EVENT DATE: 20150702
